FAERS Safety Report 7126085-X (Version None)
Quarter: 2010Q4

REPORT INFORMATION
  Report Type: 
  Country: None (occurrence: None)
  Receive Date: 20101129
  Receipt Date: 20101118
  Transmission Date: 20110411
  Serious: Yes (Other)
  Sender: FDA-Public Use
  Company Number: PL-JNJFOC-20101004285

PATIENT
  Sex: Male
  Weight: 113 kg

DRUGS (5)
  1. USTEKINUMAB [Suspect]
     Indication: PSORIASIS
     Route: 058
  2. USTEKINUMAB [Suspect]
     Route: 058
  3. METHOTREXATE [Concomitant]
     Indication: PSORIASIS
     Route: 048
  4. ACIDUM FOLICUM [Concomitant]
     Route: 048
  5. CYCLOSPORINE [Concomitant]

REACTIONS (1)
  - HEPATIC NEOPLASM [None]
